FAERS Safety Report 18525228 (Version 1)
Quarter: 2020Q4

REPORT INFORMATION
  Report Type: Other
  Country: CA (occurrence: CA)
  Receive Date: 20201120
  Receipt Date: 20201120
  Transmission Date: 20210114
  Serious: Yes (Hospitalization)
  Sender: FDA-Public Use
  Company Number: CA-CELLTRION INC.-2020CA031639

PATIENT

DRUGS (11)
  1. RITUXIMAB (UNKNOWN) [Suspect]
     Active Substance: RITUXIMAB
     Indication: ACUTE KIDNEY INJURY
     Dosage: 500 MILLIGRAM
     Route: 042
  2. LEVOTHYROXINE. [Concomitant]
     Active Substance: LEVOTHYROXINE
  3. PREDNISONE. [Concomitant]
     Active Substance: PREDNISONE
  4. FUROSEMIDE. [Concomitant]
     Active Substance: FUROSEMIDE
  5. INSULIN HUMAN [Concomitant]
     Active Substance: INSULIN HUMAN
  6. DARBEPOETIN ALFA [Concomitant]
     Active Substance: DARBEPOETIN ALFA
  7. RABEPRAZOLE [Concomitant]
     Active Substance: RABEPRAZOLE
  8. SULFAMETHOXAZOLE [Concomitant]
     Active Substance: SULFAMETHOXAZOLE
  9. RITUXIMAB (UNKNOWN) [Suspect]
     Active Substance: RITUXIMAB
     Dosage: 950 MILLIGRAM, 1 EVERY 1 WEEK
     Route: 042
  10. RITUXIMAB (UNKNOWN) [Suspect]
     Active Substance: RITUXIMAB
     Indication: GRANULOMATOSIS WITH POLYANGIITIS
     Dosage: UNK
     Route: 042
  11. HYDRALAZINE [Concomitant]
     Active Substance: HYDRALAZINE HYDROCHLORIDE

REACTIONS (5)
  - Pulmonary haemorrhage [Unknown]
  - Respiratory failure [Unknown]
  - Blood pressure increased [Unknown]
  - Off label use [Unknown]
  - Intentional product misuse [Unknown]
